FAERS Safety Report 23287362 (Version 1)
Quarter: 2023Q4

REPORT INFORMATION
  Report Type: Spontaneous
  Country: IT (occurrence: IT)
  Receive Date: 20231212
  Receipt Date: 20231212
  Transmission Date: 20240110
  Serious: Yes (Other)
  Sender: FDA-Public Use
  Company Number: IT-CHIESI-2023CHF06502

PATIENT

DRUGS (3)
  1. FERRIPROX [Suspect]
     Active Substance: DEFERIPRONE
     Indication: Thalassaemia
     Dosage: UNK
  2. DEFERASIROX [Suspect]
     Active Substance: DEFERASIROX
     Indication: Thalassaemia
     Dosage: UNK
     Route: 048
  3. DEFEROXAMINE [Suspect]
     Active Substance: DEFEROXAMINE MESYLATE
     Indication: Thalassaemia
     Dosage: UNK
     Route: 048

REACTIONS (1)
  - Deafness neurosensory [Unknown]
